FAERS Safety Report 19935067 (Version 3)
Quarter: 2021Q4

REPORT INFORMATION
  Report Type: Report from Study
  Country: None (occurrence: JP)
  Receive Date: 20211009
  Receipt Date: 20211027
  Transmission Date: 20220303
  Serious: Yes (Hospitalization)
  Sender: FDA-Public Use
  Company Number: JP-ABBVIE-21K-087-4108900-00

PATIENT
  Age: 14 Year
  Sex: Male
  Weight: 50 kg

DRUGS (38)
  1. VENCLEXTA [Suspect]
     Active Substance: VENETOCLAX
     Indication: Acute myeloid leukaemia
     Route: 048
     Dates: start: 20210409, end: 2021
  2. AZACITIDINE [Concomitant]
     Active Substance: AZACITIDINE
     Indication: Acute myeloid leukaemia
     Route: 050
     Dates: start: 20210409, end: 20210415
  3. RAMOSETRON HYDROCHLORIDE [Concomitant]
     Active Substance: RAMOSETRON HYDROCHLORIDE
     Indication: Acute myeloid leukaemia
     Route: 050
     Dates: start: 20210409, end: 20210415
  4. MICAFUNGIN SODIUM [Concomitant]
     Active Substance: MICAFUNGIN SODIUM
     Indication: Acute myeloid leukaemia
     Route: 050
     Dates: start: 20210408
  5. PIPERACILLIN SODIUM\TAZOBACTAM SODIUM [Concomitant]
     Active Substance: PIPERACILLIN SODIUM\TAZOBACTAM SODIUM
     Indication: Acute myeloid leukaemia
     Route: 050
     Dates: start: 20210408, end: 20210421
  6. PREDNISOLONE SODIUM SUCCINATE [Concomitant]
     Active Substance: PREDNISOLONE SODIUM SUCCINATE
     Indication: Acute myeloid leukaemia
     Route: 050
     Dates: start: 20210409
  7. GASTER [Concomitant]
     Active Substance: FAMOTIDINE
     Indication: Acute myeloid leukaemia
     Route: 050
     Dates: start: 20210409
  8. ACYCLOVIR [Concomitant]
     Active Substance: ACYCLOVIR
     Indication: Acute myeloid leukaemia
     Route: 048
     Dates: start: 20210311, end: 20210415
  9. ACYCLOVIR [Concomitant]
     Active Substance: ACYCLOVIR
     Route: 050
     Dates: start: 20210412
  10. POLYETHYLENE GLYCOLS [Concomitant]
     Active Substance: POLYETHYLENE GLYCOLS
     Indication: Acute myeloid leukaemia
     Route: 050
     Dates: start: 20210413, end: 20210413
  11. HYDROXYZINE HYDROCHLORIDE [Concomitant]
     Active Substance: HYDROXYZINE HYDROCHLORIDE
     Indication: Acute myeloid leukaemia
     Route: 050
     Dates: start: 20210417, end: 20210417
  12. METHOTREXATE [Concomitant]
     Active Substance: METHOTREXATE
     Indication: Acute myeloid leukaemia
     Route: 050
     Dates: start: 20210419, end: 20210419
  13. CYTARABINE [Concomitant]
     Active Substance: CYTARABINE
     Indication: Acute myeloid leukaemia
     Route: 050
     Dates: start: 20210419, end: 20210419
  14. HYDROCORTISONE SODIUM SUCCINATE [Concomitant]
     Active Substance: HYDROCORTISONE SODIUM SUCCINATE
     Indication: Acute myeloid leukaemia
     Route: 050
     Dates: start: 20210419, end: 20210419
  15. MIDAZOLAM [Concomitant]
     Active Substance: MIDAZOLAM
     Indication: Acute myeloid leukaemia
     Route: 050
     Dates: start: 20210419, end: 20210419
  16. PENTAZOCINE [Concomitant]
     Active Substance: PENTAZOCINE
     Indication: Acute myeloid leukaemia
     Route: 050
     Dates: start: 20210419, end: 20210419
  17. CAMOSTAT MESYLATE [Concomitant]
     Active Substance: CAMOSTAT MESYLATE
     Indication: Acute myeloid leukaemia
     Route: 048
     Dates: start: 20210324, end: 20210415
  18. MEROPENEM [Concomitant]
     Active Substance: MEROPENEM
     Indication: Acute myeloid leukaemia
     Route: 050
     Dates: start: 20210421
  19. TEICOPLANIN [Concomitant]
     Active Substance: TEICOPLANIN
     Indication: Acute myeloid leukaemia
     Route: 050
     Dates: start: 20210423
  20. PENTAMIDINE ISETHIONATE [Concomitant]
     Active Substance: PENTAMIDINE ISETHIONATE
     Indication: Acute myeloid leukaemia
     Route: 061
     Dates: start: 20210426, end: 20210426
  21. ACETAMINOPHEN [Concomitant]
     Active Substance: ACETAMINOPHEN
     Indication: Acute myeloid leukaemia
     Route: 050
     Dates: start: 20210505
  22. DEXTROSE\SODIUM CHLORIDE\SODIUM LACTATE [Concomitant]
     Active Substance: DEXTROSE\SODIUM CHLORIDE\SODIUM LACTATE
     Indication: Acute myeloid leukaemia
     Route: 050
     Dates: start: 20210408
  23. MAGNESIUM SULFATE [Concomitant]
     Active Substance: MAGNESIUM SULFATE
     Indication: Acute myeloid leukaemia
     Route: 050
     Dates: start: 20210408
  24. HEPARIN SODIUM [Concomitant]
     Active Substance: HEPARIN SODIUM
     Indication: Acute myeloid leukaemia
     Route: 050
     Dates: start: 20210408
  25. POTASSIUM CHLORIDE [Concomitant]
     Active Substance: POTASSIUM CHLORIDE
     Indication: Acute myeloid leukaemia
     Route: 050
     Dates: start: 20210415
  26. ALLOPURINOL [Concomitant]
     Active Substance: ALLOPURINOL
     Indication: Acute myeloid leukaemia
     Route: 048
     Dates: start: 20210408
  27. LETERMOVIR [Concomitant]
     Active Substance: LETERMOVIR
     Indication: Acute myeloid leukaemia
     Route: 048
     Dates: start: 20210327, end: 20210415
  28. PREDNISOLONE [Concomitant]
     Active Substance: PREDNISOLONE
     Indication: Acute myeloid leukaemia
     Route: 048
     Dates: start: 20210408, end: 20210415
  29. URSODIOL [Concomitant]
     Active Substance: URSODIOL
     Indication: Acute myeloid leukaemia
     Route: 048
     Dates: start: 20200412
  30. FAMOTIDINE [Concomitant]
     Active Substance: FAMOTIDINE
     Indication: Acute myeloid leukaemia
     Route: 048
     Dates: start: 20210327, end: 20210415
  31. BETAMETHASONE BUTYRATE PROPIONATE [Concomitant]
     Active Substance: BETAMETHASONE BUTYRATE PROPIONATE
     Indication: Acute myeloid leukaemia
     Route: 061
     Dates: start: 20210410
  32. CHONDROITIN SULFATE (BOVINE) [Concomitant]
     Active Substance: CHONDROITIN SULFATE (BOVINE)
     Indication: Acute myeloid leukaemia
     Route: 061
     Dates: start: 20210410
  33. 1,4-DIMETHYL-7-ISOPROPYLAZULENE [Concomitant]
     Indication: Acute myeloid leukaemia
     Route: 061
     Dates: start: 20210422
  34. OLANZAPINE [Concomitant]
     Active Substance: OLANZAPINE
     Indication: Acute myeloid leukaemia
     Route: 048
     Dates: start: 20210417
  35. LOXOPROFEN SODIUM DIHYDRATE [Concomitant]
     Active Substance: LOXOPROFEN SODIUM DIHYDRATE
     Indication: Acute myeloid leukaemia
     Route: 062
     Dates: start: 20210425
  36. KETOPROFEN [Concomitant]
     Active Substance: KETOPROFEN
     Indication: Acute myeloid leukaemia
     Route: 062
     Dates: start: 20210425
  37. WHITE PETROLATUM [Concomitant]
     Active Substance: PETROLATUM
     Indication: Acute myeloid leukaemia
     Route: 061
     Dates: start: 20210428
  38. AZACITIDINE [Concomitant]
     Active Substance: AZACITIDINE
     Indication: Acute myeloid leukaemia

REACTIONS (7)
  - Acute graft versus host disease [Unknown]
  - Pancreatitis acute [Recovered/Resolved with Sequelae]
  - Polyomavirus-associated nephropathy [Unknown]
  - Renal impairment [Unknown]
  - Haemoglobin decreased [Recovered/Resolved]
  - Platelet count decreased [Recovered/Resolved]
  - White blood cell count decreased [Recovered/Resolved]

NARRATIVE: CASE EVENT DATE: 20210101
